FAERS Safety Report 7183280-1 (Version None)
Quarter: 2010Q4

REPORT INFORMATION
  Report Type: 
  Country: None (occurrence: None)
  Receive Date: 20101222
  Receipt Date: 20100610
  Transmission Date: 20110411
  Serious: No
  Sender: FDA-Public Use
  Company Number: A0864292A

PATIENT
  Age: 59 Year
  Sex: Female

DRUGS (2)
  1. FLONASE [Suspect]
     Indication: SINUSITIS
     Dosage: 1SPR SINGLE DOSE
     Route: 045
     Dates: start: 20100609, end: 20100609
  2. INSULIN [Concomitant]

REACTIONS (2)
  - NASAL DISCOMFORT [None]
  - SUFFOCATION FEELING [None]
